FAERS Safety Report 7225802-8 (Version None)
Quarter: 2011Q1

REPORT INFORMATION
  Report Type: 
  Country: None (occurrence: None)
  Receive Date: 20110110
  Receipt Date: 20110110
  Transmission Date: 20110831
  Serious: No
  Sender: FDA-Public Use
  Company Number: None

PATIENT
  Age: 4 Year
  Sex: Male
  Weight: 13.6079 kg

DRUGS (2)
  1. SINGULAIR [Suspect]
     Indication: ASTHMA
     Dosage: 1 CHEWABLE TABLET ONCE BEFORE BED PO
     Route: 048
     Dates: start: 20100719, end: 20101229
  2. SINGULAIR [Suspect]
     Indication: MULTIPLE ALLERGIES
     Dosage: 1 CHEWABLE TABLET ONCE BEFORE BED PO
     Route: 048
     Dates: start: 20100719, end: 20101229

REACTIONS (6)
  - SCREAMING [None]
  - FEAR [None]
  - TREMOR [None]
  - HYPERHIDROSIS [None]
  - NIGHTMARE [None]
  - SOMNAMBULISM [None]
